FAERS Safety Report 17656976 (Version 6)
Quarter: 2020Q2

REPORT INFORMATION
  Report Type: Spontaneous
  Country: US (occurrence: US)
  Receive Date: 20200410
  Receipt Date: 20200601
  Transmission Date: 20200713
  Serious: Yes (Death, Life-Threatening, Hospitalization)
  Sender: FDA-Public Use
  Company Number: US-CELGENEUS-USA-20200402599

PATIENT
  Age: 71 Year
  Sex: Female

DRUGS (3)
  1. REVLIMID [Suspect]
     Active Substance: LENALIDOMIDE
     Dosage: 10 MILLIGRAM
     Route: 048
     Dates: start: 20200409, end: 20200430
  2. REVLIMID [Suspect]
     Active Substance: LENALIDOMIDE
     Dosage: 25 MILLIGRAM
     Route: 048
     Dates: start: 20200402, end: 20200430
  3. REVLIMID [Suspect]
     Active Substance: LENALIDOMIDE
     Indication: PLASMA CELL MYELOMA
     Dosage: 25 MILLIGRAM
     Route: 048
     Dates: start: 202003

REACTIONS (9)
  - Abdominal pain [Recovering/Resolving]
  - Acute kidney injury [Unknown]
  - Nausea [Not Recovered/Not Resolved]
  - Haematochezia [Recovering/Resolving]
  - Enterocolitis [Not Recovered/Not Resolved]
  - Septic shock [Fatal]
  - Rectal haemorrhage [Recovering/Resolving]
  - Perihepatic abscess [Fatal]
  - Respiratory failure [Unknown]

NARRATIVE: CASE EVENT DATE: 2020
